FAERS Safety Report 7202223-5 (Version None)
Quarter: 2010Q4

REPORT INFORMATION
  Report Type: 
  Country: None (occurrence: None)
  Receive Date: 20101229
  Receipt Date: 20101220
  Transmission Date: 20110411
  Serious: Yes (Other)
  Sender: FDA-Public Use
  Company Number: US-ABBOTT-10P-163-0693043-00

PATIENT
  Sex: Female
  Weight: 62.652 kg

DRUGS (8)
  1. HUMIRA [Suspect]
     Indication: ANKYLOSING SPONDYLITIS
     Route: 058
     Dates: start: 20101215
  2. HUMIRA [Suspect]
     Route: 058
     Dates: end: 20100907
  3. FENTANYL-100 [Concomitant]
     Indication: PAIN MANAGEMENT
     Dosage: PATCH
     Route: 061
  4. HYDROCODONE [Concomitant]
     Indication: BREAKTHROUGH PAIN
  5. ZOLOFT [Concomitant]
     Indication: DEPRESSION
  6. TRAZODONE [Concomitant]
     Indication: DEPRESSION
  7. ATIVAN [Concomitant]
     Indication: ANXIETY
  8. LITHIUM [Concomitant]
     Indication: ANXIETY
     Dosage: LOW DOSE

REACTIONS (7)
  - BACK PAIN [None]
  - BONE SCAN ABNORMAL [None]
  - GAIT DISTURBANCE [None]
  - MENINGEAL DISORDER [None]
  - MUSCLE SPASMS [None]
  - PAIN [None]
  - SCOLIOSIS [None]
